FAERS Safety Report 6308904-X (Version None)
Quarter: 2009Q3

REPORT INFORMATION
  Report Type: 
  Country: None (occurrence: None)
  Receive Date: 20090813
  Receipt Date: 20090409
  Transmission Date: 20100115
  Serious: No
  Sender: FDA-Public Use
  Company Number: US-ALLERGAN-0904989US

PATIENT
  Age: 82 Year
  Sex: Female

DRUGS (2)
  1. COMBIGAN [Suspect]
     Indication: GLAUCOMA
  2. PRESERVISION AREDS TABLETS [Suspect]
     Dosage: 1 TABLET, BID

REACTIONS (3)
  - DIZZINESS [None]
  - DRY MOUTH [None]
  - FATIGUE [None]
